FAERS Safety Report 13608144 (Version 1)
Quarter: 2017Q2

REPORT INFORMATION
  Report Type: Other
  Country: ES (occurrence: ES)
  Receive Date: 20170602
  Receipt Date: 20170602
  Transmission Date: 20170830
  Serious: Yes (Other)
  Sender: FDA-Public Use
  Company Number: ES-ACTELION-A-CH2017-154373

PATIENT
  Age: 2 Year
  Sex: Female

DRUGS (3)
  1. 2-HYDROXYPROPYL-BETA-CYCLODEXTRIN [Concomitant]
     Dosage: 325 MG, Q2WEEK
     Route: 037
  2. ZAVESCA [Suspect]
     Active Substance: MIGLUSTAT
     Indication: NIEMANN-PICK DISEASE
     Dosage: UNK
     Route: 048
  3. 2-HYDROXYPROPYL-BETA-CYCLODEXTRIN [Concomitant]
     Indication: NIEMANN-PICK DISEASE
     Dosage: 175 MG, Q2WEEK
     Route: 037

REACTIONS (11)
  - Weight decreased [Unknown]
  - Niemann-Pick disease [Unknown]
  - Drug ineffective [Unknown]
  - Epilepsy [Unknown]
  - Dysphagia [Unknown]
  - Motor dysfunction [Unknown]
  - Cerebral atrophy [Unknown]
  - Diarrhoea [Unknown]
  - Quadriparesis [Unknown]
  - Hypotonia [Unknown]
  - Condition aggravated [Unknown]
